FAERS Safety Report 8736125 (Version 2)
Quarter: 2012Q4

REPORT INFORMATION
  Report Type: 
  Country: DE (occurrence: DE)
  Receive Date: 20120822
  Receipt Date: 20121128
  Transmission Date: 20130627
  Serious: Yes (Hospitalization)
  Sender: FDA-Public Use
  Company Number: DE-PFIZER INC-2012200786

PATIENT
  Age: 68 Year
  Sex: Male
  Weight: 88 kg

DRUGS (8)
  1. GENOTROPIN [Suspect]
     Dosage: 0.2 mg, 7 injections/wk
     Route: 058
     Dates: start: 20100721, end: 20110202
  2. HYDROCORTISONE [Concomitant]
     Indication: ACTH DECREASED
     Dosage: UNK
     Dates: start: 20040415
  3. LEVOTHYROXINE [Concomitant]
     Indication: THYROID DISORDER
     Dosage: UNK
     Dates: start: 20040415
  4. AMLODIPINE [Concomitant]
     Indication: HYPERTENSION
     Dosage: UNK
     Dates: start: 20050411
  5. LISINOPRIL [Concomitant]
     Indication: HYPERTENSION
     Dosage: UNK
     Dates: start: 20050411
  6. TESTOSTERONE [Concomitant]
     Indication: LUTEINISING HORMONE DEFICIENCY
     Dosage: UNK
     Dates: start: 20040415
  7. TESTOSTERONE [Concomitant]
     Indication: FOLLICLE-STIMULATING HORMONE DEFICIENCY
  8. PRAVASTATIN [Concomitant]
     Dosage: UNK
     Dates: start: 20100504

REACTIONS (1)
  - Foreign body [Unknown]
